FAERS Safety Report 6433989-X (Version None)
Quarter: 2009Q4

REPORT INFORMATION
  Report Type: 
  Country: None (occurrence: None)
  Receive Date: 20091110
  Receipt Date: 20091027
  Transmission Date: 20100525
  Serious: Yes (Life-Threatening, Hospitalization, Other)
  Sender: FDA-Public Use
  Company Number: PHEH2007US09117

PATIENT
  Sex: Female

DRUGS (12)
  1. ZELNORM [Suspect]
     Indication: ABDOMINAL PAIN
     Dosage: 6 MG, BID
  2. MIRALAX [Concomitant]
  3. ZONEGRAN [Concomitant]
  4. ZOLOFT [Concomitant]
  5. DILANTIN                                /AUS/ [Concomitant]
  6. ERYTHROMYCIN [Concomitant]
  7. PROTONIX [Concomitant]
  8. ZOSYN [Concomitant]
  9. NEURONTIN [Concomitant]
  10. NEURONTIN [Concomitant]
  11. ACIPHEX [Concomitant]
  12. RELPAX [Concomitant]

REACTIONS (21)
  - ABDOMINAL PAIN [None]
  - ANAEMIA [None]
  - BACTERAEMIA [None]
  - CALCULUS URINARY [None]
  - CARDIOMYOPATHY [None]
  - CATHETERISATION CARDIAC [None]
  - CONVULSION [None]
  - ELECTROCARDIOGRAM ABNORMAL [None]
  - EMOTIONAL DISORDER [None]
  - GENERAL PHYSICAL HEALTH DETERIORATION [None]
  - HEART RATE ABNORMAL [None]
  - LIVER FUNCTION TEST ABNORMAL [None]
  - MITRAL VALVE DISEASE [None]
  - MYOCARDIAL INFARCTION [None]
  - PALPITATIONS [None]
  - PLEURAL EFFUSION [None]
  - PNEUMONIA [None]
  - RESPIRATORY FAILURE [None]
  - SEPTIC SHOCK [None]
  - SYNCOPE [None]
  - TACHYCARDIA [None]
